FAERS Safety Report 7552276-X (Version None)
Quarter: 2011Q2

REPORT INFORMATION
  Report Type: 
  Country: None (occurrence: None)
  Receive Date: 20110616
  Receipt Date: 20050406
  Transmission Date: 20111010
  Serious: Yes (Other)
  Sender: FDA-Public Use
  Company Number: PHHO2005JP03234

PATIENT
  Sex: Male

DRUGS (5)
  1. ACTOS [Suspect]
     Dosage: 30 MG, QD
     Route: 048
     Dates: start: 20020611
  2. DIOVAN [Suspect]
     Dosage: 40 MG, QD
     Route: 048
     Dates: start: 20030225, end: 20050205
  3. AMLODIPINE [Concomitant]
     Dates: start: 20020611
  4. AMARYL [Concomitant]
     Dates: start: 20020611
  5. BASEN [Concomitant]
     Dates: start: 20020611

REACTIONS (1)
  - DIABETIC NEPHROPATHY [None]
